FAERS Safety Report 7194059-9 (Version None)
Quarter: 2010Q4

REPORT INFORMATION
  Report Type: 
  Country: None (occurrence: None)
  Receive Date: 20101223
  Receipt Date: 20101221
  Transmission Date: 20110411
  Serious: Yes (Hospitalization)
  Sender: FDA-Public Use
  Company Number: US-PFIZER INC-2010176004

PATIENT
  Sex: Female
  Weight: 62 kg

DRUGS (5)
  1. SUNITINIB MALATE [Suspect]
     Indication: BREAST CANCER
     Dosage: 25 MG, 1X/DAY
     Route: 048
     Dates: start: 20100915, end: 20101213
  2. PACLITAXEL [Suspect]
     Indication: BREAST CANCER
     Dosage: 80 MG/M2, WEEKLY
     Route: 042
     Dates: start: 20100915, end: 20101207
  3. ZOLPIDEM [Concomitant]
     Dosage: 5 MG, AT BED TIME
     Route: 048
  4. SIMVASTATIN [Concomitant]
     Dosage: 10 MG AT BED TIME
     Route: 048
  5. CLONAZEPAM [Concomitant]
     Indication: BREAST CANCER
     Dosage: 0.5 MG AT BED TIME
     Route: 048

REACTIONS (1)
  - PNEUMONIA [None]
